FAERS Safety Report 15509620 (Version 1)
Quarter: 2018Q4

REPORT INFORMATION
  Report Type: Spontaneous
  Country: GB (occurrence: GB)
  Receive Date: 20181016
  Receipt Date: 20181016
  Transmission Date: 20190205
  Serious: Yes (Other)
  Sender: FDA-Public Use
  Company Number: GB-MYLANLABS-2018M1076043

PATIENT
  Age: 18 Year
  Sex: Male
  Weight: 73 kg

DRUGS (1)
  1. ISOTRETINOIN. [Suspect]
     Active Substance: ISOTRETINOIN
     Indication: ACNE
     Dosage: 4 DF, QD
     Route: 048
     Dates: start: 20110301, end: 20111001

REACTIONS (7)
  - Sexual dysfunction [Unknown]
  - Chapped lips [Unknown]
  - Emotional distress [Unknown]
  - Psychiatric symptom [Unknown]
  - Erectile dysfunction [Recovered/Resolved]
  - Loss of libido [Unknown]
  - Dry skin [Unknown]

NARRATIVE: CASE EVENT DATE: 20110801
